FAERS Safety Report 14187468 (Version 1)
Quarter: 2017Q4

REPORT INFORMATION
  Report Type: Spontaneous
  Country: US (occurrence: US)
  Receive Date: 20171114
  Receipt Date: 20171114
  Transmission Date: 20180321
  Serious: Yes (Hospitalization)
  Sender: FDA-Public Use
  Company Number: US-JNJFOC-20171106751

PATIENT
  Age: 44 Year
  Sex: Male
  Weight: 185.98 kg

DRUGS (1)
  1. INVOKANA [Suspect]
     Active Substance: CANAGLIFLOZIN
     Indication: TYPE 2 DIABETES MELLITUS
     Route: 048
     Dates: start: 2015

REACTIONS (3)
  - Weight decreased [Not Recovered/Not Resolved]
  - Metabolic surgery [Unknown]
  - Arthropathy [Unknown]

NARRATIVE: CASE EVENT DATE: 20160830
